FAERS Safety Report 8390056-6 (Version None)
Quarter: 2012Q2

REPORT INFORMATION
  Report Type: 
  Country: None (occurrence: None)
  Receive Date: 20120529
  Receipt Date: 20120523
  Transmission Date: 20120825
  Serious: Yes (Hospitalization)
  Sender: FDA-Public Use
  Company Number: ES-BAYER-2012-051068

PATIENT
  Age: 74 Year
  Sex: Female

DRUGS (2)
  1. NEXAVAR [Suspect]
     Indication: HEPATIC NEOPLASM MALIGNANT
     Dosage: UNK
  2. PIPERACILLIN SODIUM W/TAZOBACTAM [Concomitant]
     Dosage: DAILY DOSE 12 G
     Route: 042
     Dates: start: 20120316

REACTIONS (3)
  - ASCITES [None]
  - COLITIS ISCHAEMIC [None]
  - PERITONITIS [None]
